FAERS Safety Report 18146261 (Version 3)
Quarter: 2021Q4

REPORT INFORMATION
  Report Type: Report from Study
  Country: DE (occurrence: None)
  Receive Date: 20200813
  Receipt Date: 20211101
  Transmission Date: 20220304
  Serious: Yes (Life-Threatening)
  Sender: FDA-Public Use
  Company Number: DE-ROCHE-2658102

PATIENT
  Age: 73 Year
  Sex: Male
  Weight: 115 kg

DRUGS (7)
  1. ATEZOLIZUMAB [Suspect]
     Active Substance: ATEZOLIZUMAB
     Indication: Gastric cancer
     Dosage: ON 10/JUL/2020, LAST DOSE OF ATEZOLIZUMAB WAS ADMINISTERED PRIOR TO SAE.
     Route: 041
  2. OXALIPLATIN [Suspect]
     Active Substance: OXALIPLATIN
     Indication: Gastric cancer
     Dosage: ON 29/JUL/2020, LAST DOSE OF OXALIPLATIN WAS ADMINISTERED PRIOR TO SAE.
     Route: 065
  3. DOCETAXEL [Suspect]
     Active Substance: DOCETAXEL
     Indication: Gastric cancer
     Dosage: ON 29/JUL/2020, LAST DOSE OF DOCETAXEL WAS ADMINISTERED PRIOR TO SAE.
     Route: 065
  4. FLUOROURACIL [Suspect]
     Active Substance: FLUOROURACIL
     Indication: Gastric cancer
     Dosage: ON 29/JUL/2020, LAST DOSE OF 5-FU WAS ADMINISTERED PRIOR TO SAE.
     Route: 065
  5. LEUCOVORIN [Suspect]
     Active Substance: LEUCOVORIN
     Indication: Gastric cancer
     Dosage: ON 29/JUL/2020, LAST DOSE OF LEUCOVORIN WAS ADMINISTERED PRIOR TO SAE.
     Route: 065
  6. DIMETHINDENE [Concomitant]
     Active Substance: DIMETHINDENE
  7. ALOXI [Concomitant]
     Active Substance: PALONOSETRON HYDROCHLORIDE

REACTIONS (2)
  - Immune system disorder [Recovered/Resolved]
  - Dermatitis allergic [Recovered/Resolved]

NARRATIVE: CASE EVENT DATE: 20200810
